FAERS Safety Report 8624987-6 (Version None)
Quarter: 2012Q3

REPORT INFORMATION
  Report Type: 
  Country: None (occurrence: None)
  Receive Date: 20120827
  Receipt Date: 20120821
  Transmission Date: 20120928
  Serious: Yes (Disabling, Other)
  Sender: FDA-Public Use
  Company Number: PHHY2012GB072277

PATIENT
  Age: 56 Year
  Sex: Female
  Weight: 53.97 kg

DRUGS (1)
  1. AMLODIPINE [Suspect]
     Indication: HYPERTENSION
     Dosage: 5 MG, UNK
     Route: 048
     Dates: start: 20120329, end: 20120426

REACTIONS (11)
  - PANIC ATTACK [None]
  - DISSOCIATION [None]
  - LETHARGY [None]
  - PAIN IN EXTREMITY [None]
  - DEPRESSION [None]
  - VASCULAR INJURY [None]
  - OEDEMA PERIPHERAL [None]
  - GAIT DISTURBANCE [None]
  - DISORIENTATION [None]
  - ANXIETY [None]
  - DIZZINESS [None]
